FAERS Safety Report 10664474 (Version 2)
Quarter: 2015Q1

REPORT INFORMATION
  Report Type: Spontaneous
  Country: FR (occurrence: FR)
  Receive Date: 20141219
  Receipt Date: 20150204
  Transmission Date: 20150720
  Serious: Yes (Hospitalization, Other)
  Sender: FDA-Public Use
  Company Number: FR-ASTRAZENECA-2014SE96301

PATIENT
  Age: 91 Year
  Sex: Male

DRUGS (8)
  1. FLECAINE [Suspect]
     Active Substance: FLECAINIDE
     Route: 048
     Dates: end: 20140318
  2. PERMIXON [Concomitant]
     Active Substance: SAW PALMETTO
     Route: 048
  3. SELOKEN [Concomitant]
     Active Substance: METOPROLOL
  4. XATRAL [Concomitant]
     Active Substance: ALFUZOSIN
     Route: 048
  5. SOLUPRED [Concomitant]
     Active Substance: PREDNISOLONE
  6. ZESTORETIC [Suspect]
     Active Substance: HYDROCHLOROTHIAZIDE\LISINOPRIL
     Dosage: 20 MG/12.5 MG
     Route: 048
     Dates: end: 201403
  7. EUPRESSYL [Suspect]
     Active Substance: URAPIDIL
     Route: 048
     Dates: end: 201403
  8. ALLOPURINOL. [Concomitant]
     Active Substance: ALLOPURINOL

REACTIONS (7)
  - Syncope [Recovered/Resolved]
  - Cervical vertebral fracture [Recovered/Resolved]
  - Orthostatic hypotension [Recovered/Resolved]
  - Fibrin D dimer increased [Unknown]
  - Contusion [Recovered/Resolved]
  - Fall [Unknown]
  - Osteoarthritis [Unknown]

NARRATIVE: CASE EVENT DATE: 201311
